FAERS Safety Report 8293806-2 (Version None)
Quarter: 2012Q2

REPORT INFORMATION
  Report Type: 
  Country: None (occurrence: None)
  Receive Date: 20120413
  Receipt Date: 20120329
  Transmission Date: 20120825
  Serious: Yes (Hospitalization)
  Sender: FDA-Public Use
  Company Number: 201004015

PATIENT
  Age: 70 Year
  Sex: Female
  Weight: 54.4316 kg

DRUGS (9)
  1. ULTRAM (TAMADOL HYDROCHLORIDE) [Concomitant]
  2. ASPIRIN [Concomitant]
  3. GLUCOSAMINE (GLUCOSAMINE) [Concomitant]
  4. CALCIUM CARBONATE [Concomitant]
  5. PREMARIN (ESTOGRENS CONJUGATED) [Concomitant]
  6. EXTRA STRENGTH TYLENOL [Concomitant]
  7. ANESTHETICS, LOCAL (ANESTHETICS, LOCAL) [Concomitant]
  8. XIAFLEX [Suspect]
     Indication: DUPUYTREN'S CONTRACTURE
     Dosage: INTRALESIONAL
     Route: 026
     Dates: start: 20100316, end: 20100316
  9. SIMVASTATIN [Concomitant]

REACTIONS (9)
  - CONDITION AGGRAVATED [None]
  - OEDEMA PERIPHERAL [None]
  - LACERATION [None]
  - CERVICAL SPINAL STENOSIS [None]
  - MEDICAL DEVICE COMPLICATION [None]
  - TENDERNESS [None]
  - CONTUSION [None]
  - ARTHRALGIA [None]
  - DEVICE DISLOCATION [None]
